FAERS Safety Report 7643566-0 (Version None)
Quarter: 2011Q3

REPORT INFORMATION
  Report Type: 
  Country: None (occurrence: None)
  Receive Date: 20110729
  Receipt Date: 20110601
  Transmission Date: 20111222
  Serious: No
  Sender: FDA-Public Use
  Company Number: DE-UCBSA-034488

PATIENT
  Sex: Female

DRUGS (2)
  1. KEPPRA [Suspect]
     Indication: GRAND MAL CONVULSION
     Dosage: 2 G OVER 15 MIN
     Route: 042
     Dates: start: 20110601, end: 20110601
  2. KEPPRA [Suspect]
     Dosage: MAINTENANCE DOSE
     Route: 042
     Dates: start: 20110601

REACTIONS (2)
  - NO ADVERSE EVENT [None]
  - OFF LABEL USE [None]
